FAERS Safety Report 6912672-8 (Version None)
Quarter: 2010Q3

REPORT INFORMATION
  Report Type: 
  Country: None (occurrence: None)
  Receive Date: 20100806
  Receipt Date: 20080910
  Transmission Date: 20110219
  Serious: No
  Sender: FDA-Public Use
  Company Number: US-PFIZER INC-2008077168

PATIENT

DRUGS (4)
  1. DILANTIN [Suspect]
  2. QUINIDINE HCL [Concomitant]
  3. ZOLOFT [Concomitant]
  4. VYTORIN [Concomitant]

REACTIONS (1)
  - DRUG LEVEL ABOVE THERAPEUTIC [None]
